FAERS Safety Report 16101920 (Version 1)
Quarter: 2019Q1

REPORT INFORMATION
  Report Type: Report from Study
  Country: ES (occurrence: ES)
  Receive Date: 20190321
  Receipt Date: 20190321
  Transmission Date: 20190418
  Serious: Yes (Hospitalization, Other)
  Sender: FDA-Public Use
  Company Number: ES-MYLANLABS-2019M1025373

PATIENT
  Age: 39 Year
  Sex: Female

DRUGS (3)
  1. DIAZEPAM. [Interacting]
     Active Substance: DIAZEPAM
     Indication: SPINAL PAIN
     Dosage: 5 MILLIGRAM, QD
     Route: 048
     Dates: start: 2015
  2. GABAPENTINA [Interacting]
     Active Substance: GABAPENTIN
     Indication: SPINAL PAIN
     Dosage: 300 MILLIGRAM
     Route: 048
     Dates: start: 20160817, end: 20160818
  3. FENTANYL. [Suspect]
     Active Substance: FENTANYL
     Indication: SPINAL PAIN
     Dosage: 50 MICROGRAM, QD
     Route: 062
     Dates: start: 20160817, end: 20160818

REACTIONS (2)
  - Drug interaction [Unknown]
  - Encephalopathy [Recovered/Resolved]

NARRATIVE: CASE EVENT DATE: 20160818
